FAERS Safety Report 6151190-4 (Version None)
Quarter: 2009Q2

REPORT INFORMATION
  Report Type: 
  Country: None (occurrence: None)
  Receive Date: 20090410
  Receipt Date: 20090330
  Transmission Date: 20091009
  Serious: Yes (Life-Threatening, Hospitalization)
  Sender: FDA-Public Use
  Company Number: JP-JNJFOC-20090101847

PATIENT
  Sex: Female

DRUGS (19)
  1. REMICADE [Suspect]
     Dosage: 20TH DOSE OF INFLIXIMAB
     Route: 042
  2. REMICADE [Suspect]
     Indication: RHEUMATOID ARTHRITIS
     Dosage: INFUSION 1-19 ON UNSPECIFIED DATES
     Route: 042
  3. RHEUMATREX [Suspect]
     Route: 048
  4. RHEUMATREX [Suspect]
     Indication: RHEUMATOID ARTHRITIS
     Route: 048
  5. PREDONINE [Suspect]
     Indication: INTERSTITIAL LUNG DISEASE
     Route: 042
  6. SOLU-MEDROL [Suspect]
     Indication: INTERSTITIAL LUNG DISEASE
     Route: 042
  7. VENOGLOBULIN [Suspect]
     Indication: INTERSTITIAL LUNG DISEASE
     Route: 042
  8. GASTER-D [Concomitant]
     Indication: INTERSTITIAL LUNG DISEASE
     Route: 048
  9. FOLIAMIN [Concomitant]
     Route: 048
  10. PREDNISOLONE [Concomitant]
     Route: 048
  11. BREDININ [Concomitant]
     Route: 048
  12. BONALON [Concomitant]
     Route: 048
  13. MARZULENE-S [Concomitant]
     Dosage: DOSE = ^3 PAC^
     Route: 048
  14. BIOFERMIN [Concomitant]
     Route: 048
  15. HYPEN [Concomitant]
     Route: 048
  16. DEPAS [Concomitant]
     Route: 048
  17. RHEUMATREX [Concomitant]
     Route: 048
  18. KAMAG [Concomitant]
     Route: 048
  19. TAKEPRON [Concomitant]

REACTIONS (4)
  - BLOOD PRESSURE ABNORMAL [None]
  - DEPRESSED LEVEL OF CONSCIOUSNESS [None]
  - OXYGEN SATURATION DECREASED [None]
  - PNEUMOCYSTIS JIROVECI PNEUMONIA [None]
